FAERS Safety Report 9128503 (Version 1)
Quarter: 2013Q1

REPORT INFORMATION
  Report Type: Spontaneous
  Country: US (occurrence: US)
  Receive Date: 20130228
  Receipt Date: 20130228
  Transmission Date: 20140127
  Serious: Yes (Hospitalization)
  Sender: FDA-Public Use
  Company Number: US-GLAXOSMITHKLINE-A0998828A

PATIENT
  Age: 46 Year
  Sex: Female
  Weight: 70.5 kg

DRUGS (2)
  1. IMITREX [Suspect]
     Indication: MIGRAINE
     Dosage: 40MG AS REQUIRED
     Route: 065
  2. INDERAL [Concomitant]
     Indication: HEART RATE IRREGULAR
     Dosage: 60MG PER DAY
     Route: 065

REACTIONS (3)
  - Myocardial infarction [Recovered/Resolved]
  - Dyspnoea [Recovered/Resolved]
  - Chest pain [Recovered/Resolved]
